FAERS Safety Report 21564691 (Version 2)
Quarter: 2023Q1

REPORT INFORMATION
  Report Type: Spontaneous
  Country: JP (occurrence: JP)
  Receive Date: 20221108
  Receipt Date: 20230206
  Transmission Date: 20230417
  Serious: Yes (Hospitalization)
  Sender: FDA-Public Use
  Company Number: JP-BRISTOL-MYERS SQUIBB COMPANY-2022-133354

PATIENT
  Age: 8 Decade
  Sex: Male

DRUGS (2)
  1. YERVOY [Suspect]
     Active Substance: IPILIMUMAB
     Indication: Oesophageal carcinoma
     Dates: start: 20220715
  2. OPDIVO [Suspect]
     Active Substance: NIVOLUMAB
     Indication: Oesophageal carcinoma
     Dates: start: 20220715

REACTIONS (3)
  - Diarrhoea [Recovering/Resolving]
  - Malaise [Recovering/Resolving]
  - Adrenal disorder [Recovering/Resolving]

NARRATIVE: CASE EVENT DATE: 20221028
